FAERS Safety Report 5712797-9 (Version None)
Quarter: 2008Q2

REPORT INFORMATION
  Report Type: 
  Country: None (occurrence: None)
  Receive Date: 20080421
  Receipt Date: 20080421
  Transmission Date: 20081010
  Serious: No
  Sender: FDA-Public Use
  Company Number: None

PATIENT
  Age: 52 Year
  Sex: Female
  Weight: 74.8435 kg

DRUGS (3)
  1. WELLBUTRIN XL [Suspect]
     Indication: DEPRESSION
     Dosage: 300 MG ONCE/DAY PO
     Route: 048
     Dates: start: 20080115, end: 20080315
  2. ESTRADIOL [Concomitant]
  3. XYZAL [Concomitant]

REACTIONS (9)
  - DEPRESSED MOOD [None]
  - DEPRESSION [None]
  - DISEASE RECURRENCE [None]
  - DRUG INEFFECTIVE [None]
  - FEELING OF DESPAIR [None]
  - INSOMNIA [None]
  - IRRITABILITY [None]
  - THERAPEUTIC RESPONSE UNEXPECTED WITH DRUG SUBSTITUTION [None]
  - WEIGHT INCREASED [None]
